FAERS Safety Report 19809139 (Version 1)
Quarter: 2021Q3

REPORT INFORMATION
  Report Type: Spontaneous
  Country: US (occurrence: US)
  Receive Date: 20210909
  Receipt Date: 20210909
  Transmission Date: 20211014
  Serious: Yes (Hospitalization)
  Sender: FDA-Public Use
  Company Number: None

PATIENT
  Age: 52 Year
  Sex: Male

DRUGS (1)
  1. OCTAGAM IMMUNE GLOBULIN (HUMAN) [Suspect]
     Active Substance: HUMAN IMMUNOGLOBULIN G
     Indication: POLYNEUROPATHY
     Dosage: DAILY FOR 2 DAYS EVERY THREE WEEKS
     Route: 042
     Dates: start: 202106

REACTIONS (3)
  - Pulmonary embolism [None]
  - Therapy cessation [None]
  - Pneumonia [None]

NARRATIVE: CASE EVENT DATE: 20210701
